FAERS Safety Report 12685091 (Version 6)
Quarter: 2017Q1

REPORT INFORMATION
  Report Type: Report from Study
  Country: BR (occurrence: BR)
  Receive Date: 20160825
  Receipt Date: 20170228
  Transmission Date: 20170428
  Serious: Yes (Other)
  Sender: FDA-Public Use
  Company Number: PHHY2016BR116752

PATIENT
  Sex: Female
  Weight: 80 kg

DRUGS (3)
  1. TAPAZOL [Concomitant]
     Indication: THYROID DISORDER
     Route: 065
     Dates: start: 2009
  2. SANDOSTATIN LAR DEPOT [Suspect]
     Active Substance: OCTREOTIDE ACETATE
     Dosage: 30 MG, Q2MO (EVERY OTHER MONTH)
     Route: 065
     Dates: start: 20160819
  3. SANDOSTATIN LAR DEPOT [Suspect]
     Active Substance: OCTREOTIDE ACETATE
     Indication: ACROMEGALY
     Dosage: 30 MG, QMO
     Route: 065
     Dates: start: 2009

REACTIONS (27)
  - Bone disorder [Unknown]
  - Musculoskeletal stiffness [Unknown]
  - Constipation [Unknown]
  - Product use issue [Unknown]
  - Flavivirus infection [Unknown]
  - Memory impairment [Unknown]
  - Spinal disorder [Unknown]
  - Rheumatic disorder [Unknown]
  - Nodule [Unknown]
  - Knee deformity [Unknown]
  - Inappropriate schedule of drug administration [Unknown]
  - Goitre [Unknown]
  - Dizziness [Unknown]
  - Gait disturbance [Unknown]
  - Arthritis [Unknown]
  - Hormone level abnormal [Unknown]
  - Thyroid mass [Unknown]
  - Spinal pain [Unknown]
  - Osteoarthritis [Unknown]
  - Abdominal discomfort [Unknown]
  - General physical condition abnormal [Unknown]
  - Hypertension [Unknown]
  - Bone pain [Unknown]
  - Swelling [Unknown]
  - Pain in extremity [Unknown]
  - Malaise [Unknown]
  - Arthralgia [Unknown]

NARRATIVE: CASE EVENT DATE: 2010
